FAERS Safety Report 6313781-7 (Version None)
Quarter: 2009Q3

REPORT INFORMATION
  Report Type: 
  Country: None (occurrence: None)
  Receive Date: 20090818
  Receipt Date: 20090112
  Transmission Date: 20100115
  Serious: No
  Sender: FDA-Public Use
  Company Number: US-BRISTOL-MYERS SQUIBB COMPANY-14468920

PATIENT
  Age: 28 Year
  Sex: Male

DRUGS (1)
  1. REYATAZ [Suspect]

REACTIONS (3)
  - CHILLS [None]
  - PYREXIA [None]
  - RASH MACULO-PAPULAR [None]
